FAERS Safety Report 8102341-3 (Version None)
Quarter: 2012Q1

REPORT INFORMATION
  Report Type: 
  Country: None (occurrence: None)
  Receive Date: 20120201
  Receipt Date: 20120127
  Transmission Date: 20120608
  Serious: No
  Sender: FDA-Public Use
  Company Number: US-PFIZER INC-2012023411

PATIENT
  Sex: Female

DRUGS (2)
  1. ESTRING [Suspect]
     Indication: VULVOVAGINAL DRYNESS
     Dosage: 2 MG, EVERY 3 MONTHS
     Route: 067
  2. CELEBREX [Concomitant]
     Indication: ARTHRALGIA
     Dosage: 200 MG, DAILY

REACTIONS (2)
  - VULVOVAGINAL DRYNESS [None]
  - VULVOVAGINAL BURNING SENSATION [None]
